FAERS Safety Report 6855013-7 (Version None)
Quarter: 2010Q3

REPORT INFORMATION
  Report Type: 
  Country: None (occurrence: None)
  Receive Date: 20100717
  Receipt Date: 20080423
  Transmission Date: 20110219
  Serious: No
  Sender: FDA-Public Use
  Company Number: US-PFIZER INC-2007104444

PATIENT
  Sex: Female
  Weight: 81.2 kg

DRUGS (8)
  1. CHANTIX [Suspect]
     Indication: SMOKING CESSATION THERAPY
     Route: 048
     Dates: start: 20071201, end: 20071201
  2. CHANTIX [Suspect]
     Indication: TOBACCO ABUSE
  3. SYNTHROID [Concomitant]
  4. ZOCOR [Concomitant]
  5. ZETIA [Concomitant]
  6. VYTORIN [Concomitant]
  7. LASIX [Concomitant]
  8. ZESTRIL [Concomitant]

REACTIONS (10)
  - DEPRESSION [None]
  - DISORIENTATION [None]
  - DIZZINESS [None]
  - DRUG INEFFECTIVE [None]
  - FEELING ABNORMAL [None]
  - HEADACHE [None]
  - INSOMNIA [None]
  - MALAISE [None]
  - NIGHTMARE [None]
  - TREMOR [None]
